FAERS Safety Report 7287256-5 (Version None)
Quarter: 2011Q1

REPORT INFORMATION
  Report Type: 
  Country: None (occurrence: None)
  Receive Date: 20110211
  Receipt Date: 20110201
  Transmission Date: 20110831
  Serious: Yes (Other)
  Sender: FDA-Public Use
  Company Number: DE-AMGEN-DEUCT2011007264

PATIENT
  Age: 71 Year
  Sex: Male

DRUGS (3)
  1. ETANERCEPT [Suspect]
     Dosage: 50 MG, UNK
  2. ETANERCEPT [Suspect]
     Indication: RHEUMATOID ARTHRITIS
     Dosage: 25 MG, UNK
     Route: 065
     Dates: start: 20020301
  3. LEFLUNOMIDE [Concomitant]
     Indication: RHEUMATOID ARTHRITIS
     Dosage: 10 MG, UNK

REACTIONS (2)
  - CARDIAC FAILURE CONGESTIVE [None]
  - PULMONARY CONGESTION [None]
